FAERS Safety Report 24985921 (Version 1)
Quarter: 2025Q1

REPORT INFORMATION
  Report Type: Report from Study
  Country: US (occurrence: US)
  Receive Date: 20250219
  Receipt Date: 20250219
  Transmission Date: 20250408
  Serious: No
  Sender: ALEXION PHARMACEUTICALS
  Company Number: US-AstraZeneca-2016SE96241

PATIENT
  Age: 64 Year

DRUGS (4)
  1. NEXIUM [Suspect]
     Active Substance: ESOMEPRAZOLE MAGNESIUM
     Dosage: 40 MILLIGRAM, QD
  2. NEXIUM [Suspect]
     Active Substance: ESOMEPRAZOLE MAGNESIUM
  3. NEXIUM [Suspect]
     Active Substance: ESOMEPRAZOLE MAGNESIUM
  4. OMEPRAZOLE [Suspect]
     Active Substance: OMEPRAZOLE

REACTIONS (7)
  - Adverse drug reaction [Unknown]
  - Visual impairment [Unknown]
  - Tinnitus [Unknown]
  - Oesophageal disorder [Unknown]
  - Dyschromatopsia [Unknown]
  - Confusional state [Unknown]
  - Abdominal pain upper [Unknown]
